FAERS Safety Report 8220831-X (Version None)
Quarter: 2012Q1

REPORT INFORMATION
  Report Type: 
  Country: None (occurrence: None)
  Receive Date: 20120320
  Receipt Date: 20120315
  Transmission Date: 20120608
  Serious: Yes (Death)
  Sender: FDA-Public Use
  Company Number: JP-PFIZER INC-2012051651

PATIENT
  Age: 75 Year
  Sex: Male
  Weight: 63.7 kg

DRUGS (17)
  1. OXYCONTIN [Concomitant]
     Dosage: 5 MG, 2X/DAY
     Route: 048
     Dates: end: 20111115
  2. OXYCODONE HYDROCHLORIDE [Concomitant]
     Dosage: 2.3 MG, AS NEEDED
     Route: 048
     Dates: end: 20111105
  3. PRAVASTATIN SODIUM [Concomitant]
     Dosage: 20 MG, 1X/DAY
     Route: 048
     Dates: end: 20111105
  4. FAMOTIDINE [Concomitant]
     Dosage: 10 MG, 1X/DAY
     Route: 048
     Dates: end: 20111105
  5. WARFARIN [Concomitant]
     Dosage: 1.5 MG, 1X/DAY
     Route: 048
     Dates: end: 20111105
  6. MEDICON [Concomitant]
     Dosage: 15 MG, 3X/DAY
     Route: 048
     Dates: end: 20111105
  7. LEVOTHYROXINE SODIUM [Concomitant]
     Dosage: 50 UG, 2X/DAY
     Route: 048
     Dates: end: 20111105
  8. PROCHLORPERAZINE [Concomitant]
     Indication: PROPHYLAXIS
     Dosage: 5 MG, 3X/DAY
     Route: 048
     Dates: end: 20111105
  9. MAGMITT [Concomitant]
     Indication: PROPHYLAXIS
     Dosage: 500 MG, 3X/DAY
     Route: 048
     Dates: end: 20111105
  10. TEMSIROLIMUS [Suspect]
     Indication: METASTATIC RENAL CELL CARCINOMA
     Dosage: 25 MG/TIME
     Route: 042
     Dates: start: 20111024
  11. POLARAMINE [Concomitant]
     Indication: PROPHYLAXIS
     Dosage: 5 MG/TIME
     Route: 042
     Dates: start: 20111024
  12. LASIX [Concomitant]
     Dosage: 20 MG, 1X/DAY
     Route: 048
     Dates: end: 20111105
  13. SODIUM BICARBONATE [Concomitant]
     Dosage: 2 G, 1X/DAY
     Route: 049
     Dates: end: 20111105
  14. CANDESARTAN CILEXETIL [Concomitant]
     Dosage: 8 MG, 1X/DAY
     Route: 048
     Dates: end: 20111105
  15. EVIPROSTAT [Concomitant]
     Dosage: 1 DF, 3X/DAY
     Route: 048
     Dates: end: 20111105
  16. ARGAMATE [Concomitant]
     Dosage: 25 G, 1X/DAY
     Route: 048
     Dates: end: 20111105
  17. ACETAMINOPHEN [Concomitant]
     Dosage: 400 MG, 3X/DAY
     Route: 048
     Dates: end: 20111105

REACTIONS (2)
  - DISEASE PROGRESSION [None]
  - METASTATIC RENAL CELL CARCINOMA [None]
